FAERS Safety Report 15549878 (Version 1)
Quarter: 2018Q4

REPORT INFORMATION
  Report Type: Spontaneous
  Country: DE (occurrence: DE)
  Receive Date: 20181025
  Receipt Date: 20181025
  Transmission Date: 20190205
  Serious: Yes (Other)
  Sender: FDA-Public Use
  Company Number: PHHY2018DE096681

PATIENT
  Age: 16 Year
  Sex: Female
  Weight: 46.1 kg

DRUGS (2)
  1. MTX SANDOZ [Suspect]
     Active Substance: METHOTREXATE SODIUM
     Indication: PRODUCT USED FOR UNKNOWN INDICATION
     Dosage: 10 MG, QW
     Route: 065
     Dates: start: 20140101
  2. HUMIRA [Suspect]
     Active Substance: ADALIMUMAB
     Indication: JUVENILE IDIOPATHIC ARTHRITIS
     Dosage: 40 MG, BIW
     Route: 058
     Dates: start: 20180301, end: 2018

REACTIONS (3)
  - Pneumocystis jirovecii pneumonia [Not Recovered/Not Resolved]
  - Asthma [Unknown]
  - Respiratory disorder [Unknown]
